FAERS Safety Report 10149739 (Version 1)
Quarter: 2014Q2

REPORT INFORMATION
  Report Type: Spontaneous
  Country: FR (occurrence: FR)
  Receive Date: 20140502
  Receipt Date: 20140502
  Transmission Date: 20141212
  Serious: Yes (Hospitalization)
  Sender: FDA-Public Use
  Company Number: FR-UCBSA-119310

PATIENT
  Age: 69 Year
  Sex: Female

DRUGS (7)
  1. KEPPRA [Suspect]
     Indication: CONVULSION
     Dosage: 250 MG 2 /DAY
     Route: 048
     Dates: start: 201404, end: 201404
  2. NEUPRO [Concomitant]
     Dates: end: 2014
  3. PAROXETINE [Concomitant]
     Indication: DEPRESSION
  4. LEVOTHYROX [Concomitant]
     Indication: PRODUCT SUBSTITUTION ISSUE
     Dosage: 100 ?G/DAY
  5. DOMPERIDONE [Concomitant]
     Dates: end: 201404
  6. MODOPAR [Concomitant]
     Dates: end: 201404
  7. EBIXA [Concomitant]

REACTIONS (2)
  - Encephalopathy [Recovered/Resolved]
  - Somnolence [Recovered/Resolved]
